FAERS Safety Report 9537014 (Version 3)
Quarter: 2013Q4

REPORT INFORMATION
  Report Type: Report from Study
  Country: US (occurrence: US)
  Receive Date: 20130919
  Receipt Date: 20131001
  Transmission Date: 20140711
  Serious: Yes (Congenital Anomaly)
  Sender: FDA-Public Use
  Company Number: US-MYLANLABS-2013S1020592

PATIENT
  Sex: 0

DRUGS (8)
  1. DARUNAVIR [Suspect]
     Route: 064
  2. ETRAVIRINE [Suspect]
     Route: 064
  3. RALTEGRAVIR [Suspect]
     Route: 064
  4. RITONAVIR [Suspect]
     Route: 064
  5. EMTRICITABINE W/TENOFOVIR DISOPROXIL FUMARATE [Suspect]
     Route: 064
  6. TIPRANAVIR [Suspect]
     Route: 064
  7. ZIDOVUDINE [Suspect]
     Route: 064
  8. INSULIN ASPART [Suspect]
     Route: 064

REACTIONS (16)
  - Cloacal exstrophy [Not Recovered/Not Resolved]
  - Tethered cord syndrome [Not Recovered/Not Resolved]
  - Meningomyelocele [Not Recovered/Not Resolved]
  - Exomphalos [Not Recovered/Not Resolved]
  - Caudal regression syndrome [Not Recovered/Not Resolved]
  - Genitalia external ambiguous [Not Recovered/Not Resolved]
  - Sepsis [Not Recovered/Not Resolved]
  - Congenital musculoskeletal anomaly [Not Recovered/Not Resolved]
  - Gastrointestinal disorder congenital [Not Recovered/Not Resolved]
  - Bladder agenesis [Not Recovered/Not Resolved]
  - Meconium stain [Not Recovered/Not Resolved]
  - Umbilical cord abnormality [Not Recovered/Not Resolved]
  - Foetal exposure during pregnancy [Recovered/Resolved]
  - Lipodystrophy acquired [Not Recovered/Not Resolved]
  - Blood iron decreased [Not Recovered/Not Resolved]
  - Erythema [Not Recovered/Not Resolved]
